FAERS Safety Report 23753340 (Version 1)
Quarter: 2024Q2

REPORT INFORMATION
  Report Type: Spontaneous
  Country: ID (occurrence: ID)
  Receive Date: 20240417
  Receipt Date: 20240417
  Transmission Date: 20240716
  Serious: Yes (Hospitalization)
  Sender: FDA-Public Use
  Company Number: ID-BEH-2024170582

PATIENT
  Age: 42 Year
  Sex: Male
  Weight: 112 kg

DRUGS (1)
  1. PRIVIGEN [Suspect]
     Active Substance: HUMAN IMMUNOGLOBULIN G
     Indication: Guillain-Barre syndrome
     Dosage: UNK
     Route: 042

REACTIONS (4)
  - Acute kidney injury [Recovering/Resolving]
  - Swelling face [Recovering/Resolving]
  - Peripheral swelling [Recovering/Resolving]
  - Urine output decreased [Recovering/Resolving]
